FAERS Safety Report 8090742-1 (Version None)
Quarter: 2012Q1

REPORT INFORMATION
  Report Type: 
  Country: None (occurrence: None)
  Receive Date: 20120125
  Receipt Date: 20120111
  Transmission Date: 20120608
  Serious: Yes (Hospitalization)
  Sender: FDA-Public Use
  Company Number: JP-20110040

PATIENT
  Age: 67 Year
  Sex: Male

DRUGS (3)
  1. EPIRUBICIN HYDROCHLORIDE [Suspect]
     Indication: REGIONAL CHEMOTHERAPY
     Dosage: 30 MG (30 MG, 1 IN 1 D), INTRA-ARTERIAL
     Route: 013
     Dates: start: 20060701, end: 20060701
  2. MITOMYCIN [Suspect]
     Indication: REGIONAL CHEMOTHERAPY
     Dosage: 6 MG (6 MG, 1 IN 1 D), INTRA-ARTERIAL
     Route: 013
     Dates: start: 20060701, end: 20060701
  3. LIPIODOL ULTRA FLUIDE) (ETHIODIZED) [Suspect]
     Indication: REGIONAL CHEMOTHERAPY
     Dosage: 3 ML (3 ML, 1 IN 1 D), INTRA-ARTERIAL
     Route: 013
     Dates: start: 20060701, end: 20060701

REACTIONS (5)
  - TUMOUR EMBOLISM [None]
  - HEPATIC FAILURE [None]
  - OFF LABEL USE [None]
  - HEPATIC NEOPLASM MALIGNANT RECURRENT [None]
  - OESOPHAGEAL VARICES HAEMORRHAGE [None]
